FAERS Safety Report 7208395-0 (Version None)
Quarter: 2011Q1

REPORT INFORMATION
  Report Type: 
  Country: None (occurrence: None)
  Receive Date: 20110104
  Receipt Date: 20101223
  Transmission Date: 20110831
  Serious: Yes (Other)
  Sender: FDA-Public Use
  Company Number: PHHY2010SI75439

PATIENT
  Age: 30 Year
  Sex: Male

DRUGS (12)
  1. MICARDIS HCT [Concomitant]
     Dosage: UNK
     Dates: start: 20080101
  2. SINTROM [Concomitant]
  3. METFORMIN [Concomitant]
  4. ALISKIREN [Suspect]
     Dosage: 300 MG DAILY
     Route: 048
  5. DIAPREL [Concomitant]
     Dosage: UNK
     Dates: start: 20091116
  6. TREDAPTIVE [Concomitant]
     Dosage: 50 MG
  7. ALISKIREN [Suspect]
     Dosage: 150 MG
     Route: 048
     Dates: start: 20091116
  8. TERTENSIF [Concomitant]
  9. LESCOL XL [Concomitant]
  10. APIDRA [Concomitant]
     Dosage: UNK
     Dates: start: 20091101
  11. RAMIPRIL [Concomitant]
     Dosage: 10 MG DAILY
     Dates: start: 20040101, end: 20091216
  12. LANTUS [Concomitant]
     Dosage: UNK
     Dates: start: 20091101

REACTIONS (3)
  - GLYCOSYLATED HAEMOGLOBIN INCREASED [None]
  - BLOOD GLUCOSE INCREASED [None]
  - URINE ALBUMIN/CREATININE RATIO INCREASED [None]
